FAERS Safety Report 10967890 (Version 2)
Quarter: 2015Q2

REPORT INFORMATION
  Report Type: Spontaneous
  Country: JP (occurrence: JP)
  Receive Date: 20150330
  Receipt Date: 20150414
  Transmission Date: 20150821
  Serious: Yes (Other)
  Sender: FDA-Public Use
  Company Number: JP-GLAXOSMITHKLINE-JP2015JPN039018

PATIENT
  Age: 68 Year
  Sex: Female
  Weight: 45 kg

DRUGS (6)
  1. RIZE [Concomitant]
     Active Substance: CLOTIAZEPAM
     Indication: ANXIETY DISORDER
     Dosage: 5 MG, QD
  2. REQUIP [Suspect]
     Active Substance: ROPINIROLE HYDROCHLORIDE
     Indication: PARKINSON^S DISEASE
     Dosage: 2 MG, QD
     Route: 048
     Dates: start: 20150310, end: 20150313
  3. MENESIT [Concomitant]
     Active Substance: CARBIDOPA\LEVODOPA
     Indication: PARKINSON^S DISEASE
     Dosage: 200 MG, 1D
     Dates: start: 20131119
  4. TOVIAZ [Concomitant]
     Active Substance: FESOTERODINE FUMARATE
     Indication: POLLAKIURIA
     Dosage: 4 MG, QD
  5. BI SIFROL [Concomitant]
     Active Substance: PRAMIPEXOLE
     Indication: PARKINSON^S DISEASE
     Dates: start: 201403
  6. MENESIT [Concomitant]
     Active Substance: CARBIDOPA\LEVODOPA
     Dosage: 400 MG, 1D

REACTIONS (3)
  - Somnolence [Recovered/Resolved]
  - Clavicle fracture [Recovering/Resolving]
  - Fall [Recovered/Resolved]

NARRATIVE: CASE EVENT DATE: 20150313
